FAERS Safety Report 11756910 (Version 1)
Quarter: 2015Q4

REPORT INFORMATION
  Report Type: Spontaneous
  Country: US (occurrence: US)
  Receive Date: 20151120
  Receipt Date: 20151120
  Transmission Date: 20160304
  Serious: Yes (Hospitalization)
  Sender: FDA-Public Use
  Company Number: US-ASTRAZENECA-2015SF11398

PATIENT
  Age: 20 Year
  Sex: Female
  Weight: 62.1 kg

DRUGS (4)
  1. TOPROL XL [Suspect]
     Active Substance: METOPROLOL SUCCINATE
     Indication: VENTRICULAR EXTRASYSTOLES
     Route: 048
     Dates: start: 1998
  2. TOPROL XL [Suspect]
     Active Substance: METOPROLOL SUCCINATE
     Indication: SUPRAVENTRICULAR EXTRASYSTOLES
     Dosage: GENERIC 100 MG BY MOUTH DAILY FOR ABOUT SIX MONTHS IN 1999 OR 2000
     Route: 048
  3. TOPROL XL [Suspect]
     Active Substance: METOPROLOL SUCCINATE
     Indication: SUPRAVENTRICULAR EXTRASYSTOLES
     Route: 048
     Dates: start: 1998
  4. TOPROL XL [Suspect]
     Active Substance: METOPROLOL SUCCINATE
     Indication: VENTRICULAR EXTRASYSTOLES
     Dosage: GENERIC 100 MG BY MOUTH DAILY FOR ABOUT SIX MONTHS IN 1999 OR 2000
     Route: 048

REACTIONS (2)
  - Drug ineffective [Unknown]
  - Heart rate increased [Unknown]
